FAERS Safety Report 18065532 (Version 1)
Quarter: 2020Q3

REPORT INFORMATION
  Report Type: Spontaneous
  Country: US (occurrence: US)
  Receive Date: 20200724
  Receipt Date: 20200724
  Transmission Date: 20201103
  Serious: Yes (Hospitalization)
  Sender: FDA-Public Use
  Company Number: None

PATIENT
  Age: 28 Year
  Sex: Female

DRUGS (20)
  1. DEFERASIROX 360MG TAB (30) [Suspect]
     Active Substance: DEFERASIROX
     Indication: IRON METABOLISM DISORDER
     Route: 048
     Dates: start: 20200308
  2. IBUPROFEN. [Concomitant]
     Active Substance: IBUPROFEN
  3. DEFERASIROX 360MG TAB (60) [Suspect]
     Active Substance: DEFERASIROX
     Indication: IRON METABOLISM DISORDER
     Route: 048
     Dates: start: 20200308
  4. CITALOPRAM [Concomitant]
     Active Substance: CITALOPRAM HYDROBROMIDE
  5. HYDROCO/APAP [Concomitant]
     Active Substance: ACETAMINOPHEN\HYDROCODONE
  6. LACTULOSE. [Concomitant]
     Active Substance: LACTULOSE
  7. GENERLAC [Concomitant]
     Active Substance: LACTULOSE
  8. BUPREN/NALOX [Concomitant]
     Active Substance: BUPRENORPHINE\NALOXONE
  9. DICLOFENAC [Concomitant]
     Active Substance: DICLOFENAC
  10. HYDROXYZPAM [Concomitant]
  11. HYDROXYUREA. [Concomitant]
     Active Substance: HYDROXYUREA
  12. ONDANSETRON [Concomitant]
     Active Substance: ONDANSETRON
  13. TRIAZOLAM. [Concomitant]
     Active Substance: TRIAZOLAM
  14. AMOXICILLIN. [Concomitant]
     Active Substance: AMOXICILLIN
  15. KETOROLAC [Concomitant]
     Active Substance: KETOROLAC TROMETHAMINE
  16. MEDROXYPR AC [Concomitant]
  17. TRAZODONE [Concomitant]
     Active Substance: TRAZODONE HYDROCHLORIDE
  18. CLONIDINE. [Concomitant]
     Active Substance: CLONIDINE
  19. FOLIC ACID. [Concomitant]
     Active Substance: FOLIC ACID
  20. TIZANIDINE. [Concomitant]
     Active Substance: TIZANIDINE

REACTIONS (1)
  - Hospitalisation [None]

NARRATIVE: CASE EVENT DATE: 20200723
